FAERS Safety Report 13801294 (Version 2)
Quarter: 2017Q3

REPORT INFORMATION
  Report Type: Spontaneous
  Country: FR (occurrence: FR)
  Receive Date: 20170727
  Receipt Date: 20170803
  Transmission Date: 20171127
  Serious: Yes (Hospitalization)
  Sender: FDA-Public Use
  Company Number: FR-TEVA-790256ROM

PATIENT
  Age: 25 Year
  Sex: Female

DRUGS (1)
  1. GEMCITABINE [Suspect]
     Active Substance: GEMCITABINE\GEMCITABINE HYDROCHLORIDE
     Indication: LIPOSARCOMA
     Dosage: 13440 MILLIGRAM DAILY;
     Route: 065

REACTIONS (1)
  - Thrombotic microangiopathy [Recovering/Resolving]
